FAERS Safety Report 8613894-0 (Version None)
Quarter: 2012Q3

REPORT INFORMATION
  Report Type: 
  Country: None (occurrence: None)
  Receive Date: 20120823
  Receipt Date: 20120810
  Transmission Date: 20120928
  Serious: Yes (Other)
  Sender: FDA-Public Use
  Company Number: MY-009507513-1208MYS003418

PATIENT

DRUGS (2)
  1. IMIPENEM AND CILASTATIN SODIUM [Suspect]
     Indication: SEPSIS
     Dosage: 525 MG, QD
  2. AMIKACIN [Concomitant]

REACTIONS (1)
  - EPILEPSY [None]
